FAERS Safety Report 20007451 (Version 2)
Quarter: 2021Q4

REPORT INFORMATION
  Report Type: Report from Study
  Country: JP (occurrence: JP)
  Receive Date: 20211028
  Receipt Date: 20211102
  Transmission Date: 20220303
  Serious: Yes (Death)
  Sender: FDA-Public Use
  Company Number: JP-PFIZER INC-202101420192

PATIENT
  Age: 4 Month
  Sex: Male
  Weight: 1.5 kg

DRUGS (1)
  1. REVATIO [Suspect]
     Active Substance: SILDENAFIL CITRATE
     Indication: Chronic obstructive pulmonary disease
     Dosage: 0.5 MG, 2X/DAY
     Dates: start: 20180130, end: 20180307

REACTIONS (2)
  - Bronchopulmonary dysplasia [Fatal]
  - Pulmonary hypertension [Fatal]
